FAERS Safety Report 11588646 (Version 1)
Quarter: 2015Q4

REPORT INFORMATION
  Report Type: Spontaneous
  Country: US (occurrence: US)
  Receive Date: 20151002
  Receipt Date: 20151002
  Transmission Date: 20160304
  Serious: Yes (Other)
  Sender: FDA-Public Use
  Company Number: US-BAYER-2015-428317

PATIENT
  Sex: Female

DRUGS (1)
  1. MIRENA [Suspect]
     Active Substance: LEVONORGESTREL
     Indication: CONTRACEPTION
     Dosage: 20 MCG/24HR, CONT
     Route: 015

REACTIONS (8)
  - Ovarian cyst [None]
  - Psychological factor affecting medical condition [Recovering/Resolving]
  - Depressed mood [Recovering/Resolving]
  - Fallopian tube disorder [None]
  - Infertility [None]
  - Mood altered [Recovering/Resolving]
  - Infection [None]
  - Pain [Not Recovered/Not Resolved]
